FAERS Safety Report 23980456 (Version 2)
Quarter: 2024Q3

REPORT INFORMATION
  Report Type: Report from Study
  Country: US (occurrence: US)
  Receive Date: 20240617
  Receipt Date: 20240710
  Transmission Date: 20241017
  Serious: Yes (Death, Hospitalization)
  Sender: INSMED
  Company Number: US-INSMED, INC.-2024-02343-US

PATIENT
  Sex: Female

DRUGS (1)
  1. ARIKAYCE [Suspect]
     Active Substance: AMIKACIN
     Indication: Mycobacterial infection
     Dosage: 590 MILLIGRAM, QD
     Route: 055
     Dates: start: 202405, end: 20240605

REACTIONS (7)
  - Death [Fatal]
  - Oxygen saturation decreased [Unknown]
  - Dyspnoea [Unknown]
  - Hypersomnia [Not Recovered/Not Resolved]
  - Fatigue [Not Recovered/Not Resolved]
  - Aphonia [Not Recovered/Not Resolved]
  - Asthenia [Unknown]

NARRATIVE: CASE EVENT DATE: 20240101
